FAERS Safety Report 8005413-7 (Version None)
Quarter: 2011Q4

REPORT INFORMATION
  Report Type: 
  Country: None (occurrence: None)
  Receive Date: 20111223
  Receipt Date: 20111221
  Transmission Date: 20120403
  Serious: Yes (Hospitalization, Other)
  Sender: FDA-Public Use
  Company Number: US-ROCHE-1024419

PATIENT
  Sex: Female
  Weight: 62.652 kg

DRUGS (8)
  1. TOCILIZUMAB [Suspect]
     Dosage: DOSE - 510
     Dates: start: 20111116
  2. LISINOPRIL [Concomitant]
     Route: 048
  3. PREDNISONE TAB [Concomitant]
     Route: 048
  4. TOCILIZUMAB [Suspect]
     Dosage: DOSE - 514
     Dates: start: 20110808
  5. TOCILIZUMAB [Suspect]
     Dosage: DOSE - 530
     Dates: start: 20111004
  6. ASPIRIN [Concomitant]
     Route: 048
  7. TOCILIZUMAB [Suspect]
     Indication: RHEUMATOID ARTHRITIS
     Dosage: TOTAL MONTHLY DOSE - 251 MG
     Route: 042
     Dates: start: 20100615
  8. TOCILIZUMAB [Suspect]
     Dosage: DOSE - 530
     Dates: start: 20110906

REACTIONS (1)
  - CEREBROVASCULAR ACCIDENT [None]
